FAERS Safety Report 8793200 (Version 1)
Quarter: 2012Q4

REPORT INFORMATION
  Report Type: 
  Country: US (occurrence: US)
  Receive Date: 20120918
  Receipt Date: 20120918
  Transmission Date: 20130627
  Serious: Yes (Other)
  Sender: FDA-Public Use
  Company Number: US-009507513-1209USA005935

PATIENT

DRUGS (5)
  1. SAPHRIS [Suspect]
     Dosage: 10 mg, hs
     Route: 060
  2. GEODON [Suspect]
  3. VENLAFAXINE HYDROCHLORIDE [Suspect]
     Dosage: 225 mg, UNK
  4. SEROQUEL [Concomitant]
  5. VENLAFAXINE HYDROCHLORIDE [Concomitant]

REACTIONS (13)
  - Paranoia [Unknown]
  - Disorientation [Unknown]
  - Feeling abnormal [Unknown]
  - Psychomotor hyperactivity [Unknown]
  - Migraine [Unknown]
  - Tachyphrenia [Unknown]
  - Initial insomnia [Unknown]
  - Drug intolerance [Unknown]
  - Middle insomnia [Unknown]
  - Dizziness [Unknown]
  - Fatigue [Unknown]
  - Nausea [Unknown]
  - Vomiting [Unknown]
